FAERS Safety Report 8955628 (Version 1)
Quarter: 2012Q4

REPORT INFORMATION
  Report Type: Report from Study
  Country: US (occurrence: US)
  Receive Date: 20121207
  Receipt Date: 20121207
  Transmission Date: 20130627
  Serious: Yes (Hospitalization)
  Sender: FDA-Public Use
  Company Number: US-US-EMD SERONO, INC.-7179726

PATIENT
  Sex: Female

DRUGS (1)
  1. REBIF [Suspect]
     Indication: MULTIPLE SCLEROSIS
     Route: 058
     Dates: start: 20120824

REACTIONS (4)
  - Petit mal epilepsy [Recovered/Resolved]
  - Central nervous system lesion [Unknown]
  - Headache [Unknown]
  - Drug ineffective [Unknown]
